FAERS Safety Report 18807946 (Version 1)
Quarter: 2021Q1

REPORT INFORMATION
  Report Type: Spontaneous
  Country: US (occurrence: US)
  Receive Date: 20210129
  Receipt Date: 20210129
  Transmission Date: 20210419
  Serious: Yes (Hospitalization)
  Sender: FDA-Public Use
  Company Number: None

PATIENT
  Age: 39 Year
  Sex: Male
  Weight: 124.7 kg

DRUGS (6)
  1. ONDANSETRON [Concomitant]
     Active Substance: ONDANSETRON
  2. METFORMIN [Concomitant]
     Active Substance: METFORMIN HYDROCHLORIDE
  3. DULAGLUTIDE. [Concomitant]
     Active Substance: DULAGLUTIDE
  4. LOSARTAN. [Concomitant]
     Active Substance: LOSARTAN
  5. BAMLANIVIMAB. [Suspect]
     Active Substance: BAMLANIVIMAB
     Indication: CORONAVIRUS TEST POSITIVE
     Dosage: ?          OTHER FREQUENCY:ONCE;?
     Route: 041
  6. ALLOPURINOL. [Concomitant]
     Active Substance: ALLOPURINOL

REACTIONS (6)
  - Lung infiltration [None]
  - Dyspnoea [None]
  - Pyrexia [None]
  - Oxygen saturation decreased [None]
  - Cough [None]
  - COVID-19 pneumonia [None]

NARRATIVE: CASE EVENT DATE: 20210128
